FAERS Safety Report 7347732-3 (Version None)
Quarter: 2011Q1

REPORT INFORMATION
  Report Type: 
  Country: None (occurrence: None)
  Receive Date: 20110218
  Receipt Date: 20100920
  Transmission Date: 20110831
  Serious: Yes (Life-Threatening)
  Sender: FDA-Public Use
  Company Number: 2010026491

PATIENT
  Sex: Female
  Weight: 117.9 kg

DRUGS (1)
  1. HIZENTRA [Suspect]
     Indication: IMMUNODEFICIENCY
     Dosage: 50 ML (10 GM) WEEKLY; 15 ML/HR/SITE (3 SITES TOTAL); 20% CONCENTRATION SUBCUTANEOUS)
     Route: 058
     Dates: start: 20100916

REACTIONS (8)
  - HYPERSENSITIVITY [None]
  - THROAT TIGHTNESS [None]
  - WHEEZING [None]
  - COUGH [None]
  - DYSPNOEA [None]
  - SWOLLEN TONGUE [None]
  - CHEST DISCOMFORT [None]
  - THROAT IRRITATION [None]
